FAERS Safety Report 6403561-6 (Version None)
Quarter: 2009Q4

REPORT INFORMATION
  Report Type: 
  Country: None (occurrence: None)
  Receive Date: 20091015
  Receipt Date: 20091015
  Transmission Date: 20100525
  Serious: No
  Sender: FDA-Public Use
  Company Number: None

PATIENT
  Age: 51 Year
  Sex: Male
  Weight: 108.8633 kg

DRUGS (8)
  1. GEODON [Suspect]
     Indication: HYPOMANIA
     Dosage: 80 MG 2 TID PO
     Route: 048
  2. ADDERALL 10 [Concomitant]
  3. BUPROPION HCL [Concomitant]
  4. LYRICA [Concomitant]
  5. ULTRACET [Concomitant]
  6. IBUPROFEN [Concomitant]
  7. FLEXERIL [Concomitant]
  8. IMMITREX [Concomitant]

REACTIONS (1)
  - TARDIVE DYSKINESIA [None]
